FAERS Safety Report 8395280-4 (Version None)
Quarter: 2012Q2

REPORT INFORMATION
  Report Type: 
  Country: None (occurrence: None)
  Receive Date: 20120530
  Receipt Date: 20120524
  Transmission Date: 20120825
  Serious: Yes (Other)
  Sender: FDA-Public Use
  Company Number: PHHY2012JP045436

PATIENT
  Age: 59 Year
  Sex: Male

DRUGS (2)
  1. VOLTAREN [Suspect]
     Indication: TOOTHACHE
     Dosage: 5 DF DAILY
     Route: 048
  2. CHEMOTHERAPEUTICS NOS [Concomitant]

REACTIONS (4)
  - ALANINE AMINOTRANSFERASE INCREASED [None]
  - BLOOD LACTATE DEHYDROGENASE INCREASED [None]
  - ASPARTATE AMINOTRANSFERASE INCREASED [None]
  - BLOOD CREATINE PHOSPHOKINASE INCREASED [None]
